FAERS Safety Report 19936876 (Version 2)
Quarter: 2021Q4

REPORT INFORMATION
  Report Type: Spontaneous
  Country: AU (occurrence: AU)
  Receive Date: 20211009
  Receipt Date: 20211028
  Transmission Date: 20220303
  Serious: Yes (Other)
  Sender: FDA-Public Use
  Company Number: AU-ALXN-A202111086

PATIENT
  Age: 46 Year
  Sex: Female
  Weight: 67 kg

DRUGS (1)
  1. SOLIRIS [Suspect]
     Active Substance: ECULIZUMAB
     Indication: Atypical haemolytic uraemic syndrome
     Dosage: FORTNIGHTLY
     Route: 065

REACTIONS (1)
  - Thrombotic microangiopathy [Unknown]

NARRATIVE: CASE EVENT DATE: 20210930
